FAERS Safety Report 18933682 (Version 1)
Quarter: 2021Q1

REPORT INFORMATION
  Report Type: Report from Study
  Country: US (occurrence: US)
  Receive Date: 20210224
  Receipt Date: 20210224
  Transmission Date: 20210420
  Serious: Yes (Hospitalization)
  Sender: FDA-Public Use
  Company Number: US-ASTRAZENECA-2021A008772

PATIENT
  Age: 22222 Day
  Sex: Male

DRUGS (4)
  1. METFORMIN [Concomitant]
     Active Substance: METFORMIN HYDROCHLORIDE
  2. LYNPARZA [Suspect]
     Active Substance: OLAPARIB
     Indication: PANCREATIC CARCINOMA
     Route: 048
     Dates: start: 20191215
  3. CANDESARTAN. [Concomitant]
     Active Substance: CANDESARTAN
  4. TENORMIN [Concomitant]
     Active Substance: ATENOLOL

REACTIONS (2)
  - Rectal haemorrhage [Unknown]
  - Ascites [Unknown]

NARRATIVE: CASE EVENT DATE: 20210108
